FAERS Safety Report 9034644 (Version 1)
Quarter: 2013Q1

REPORT INFORMATION
  Report Type: Spontaneous
  Country: US (occurrence: US)
  Receive Date: 20130128
  Receipt Date: 20130128
  Transmission Date: 20140127
  Serious: Yes (Other)
  Sender: FDA-Public Use
  Company Number: US-GLAXOSMITHKLINE-A1009176A

PATIENT
  Age: 56 Year
  Sex: Female

DRUGS (13)
  1. HORIZANT [Suspect]
     Indication: RESTLESS LEGS SYNDROME
     Dosage: 600MG PER DAY
     Route: 048
     Dates: start: 2012
  2. NOVOLOG INSULIN [Concomitant]
  3. GLUMETZA [Concomitant]
  4. DEXILANT [Concomitant]
  5. FENOFIBRATE [Concomitant]
  6. METOPROLOL [Concomitant]
  7. PLAVIX [Concomitant]
  8. MIRAPEX [Concomitant]
  9. SERTRALINE [Concomitant]
  10. SINGULAIR [Concomitant]
  11. ZETIA [Concomitant]
  12. FLONASE [Concomitant]
  13. ESTRACE CREAM [Concomitant]

REACTIONS (7)
  - Deafness unilateral [Not Recovered/Not Resolved]
  - Headache [Unknown]
  - Ear pain [Unknown]
  - Middle ear effusion [Unknown]
  - Dizziness [Unknown]
  - Insomnia [Unknown]
  - Treatment noncompliance [Unknown]
